FAERS Safety Report 15835402 (Version 6)
Quarter: 2023Q4

REPORT INFORMATION
  Report Type: Spontaneous
  Country: IT (occurrence: IT)
  Receive Date: 20190117
  Receipt Date: 20231215
  Transmission Date: 20240110
  Serious: Yes (Other)
  Sender: FDA-Public Use
  Company Number: IT-AUROBINDO-AUR-APL-2019-000476

PATIENT
  Age: 40 Year
  Sex: Female
  Weight: 70 kg

DRUGS (34)
  1. LAMOTRIGINE [Interacting]
     Active Substance: LAMOTRIGINE
     Indication: Partial seizures
     Dosage: 350 MILLIGRAM, DAILY
     Route: 048
  2. LAMOTRIGINE [Interacting]
     Active Substance: LAMOTRIGINE
     Dosage: 450 MILLIGRAM, DAILY
     Route: 048
  3. LEVETIRACETAM [Interacting]
     Active Substance: LEVETIRACETAM
     Indication: Generalised tonic-clonic seizure
     Dosage: UNK
     Route: 048
  4. CETRORELIX ACETATE [Interacting]
     Active Substance: CETRORELIX ACETATE
     Indication: Hypothalamo-pituitary disorder
     Dosage: 0.25 MG, UNK (FOR 8 DAYS, RECEIVED DURING IN VITRO FERTILIZATION))
     Route: 065
  5. CETRORELIX ACETATE [Interacting]
     Active Substance: CETRORELIX ACETATE
     Indication: In vitro fertilisation
     Dosage: UNK
     Route: 065
  6. CETRORELIX ACETATE [Interacting]
     Active Substance: CETRORELIX ACETATE
     Indication: Hormone therapy
  7. CETRORELIX ACETATE [Interacting]
     Active Substance: CETRORELIX ACETATE
     Indication: Controlled ovarian stimulation
  8. CETRORELIX ACETATE [Interacting]
     Active Substance: CETRORELIX ACETATE
     Indication: Assisted fertilisation
  9. CHORIOGONADOTROPIN ALFA [Suspect]
     Active Substance: CHORIOGONADOTROPIN ALFA
     Indication: Controlled ovarian stimulation
     Dosage: UNK
     Route: 065
  10. CORIFOLLITROPIN ALFA [Suspect]
     Active Substance: CORIFOLLITROPIN ALFA
     Indication: Controlled ovarian stimulation
     Dosage: UNK
     Route: 065
  11. ESTRADIOL [Interacting]
     Active Substance: ESTRADIOL
     Indication: Assisted reproductive technology
     Dosage: UNK
     Route: 065
  12. ESTRADIOL [Interacting]
     Active Substance: ESTRADIOL
     Indication: Hormone therapy
     Dosage: 4 MILLIGRAM, FOR 10 DAYS
     Route: 065
  13. ETHINYL ESTRADIOL [Suspect]
     Active Substance: ETHINYL ESTRADIOL
     Indication: In vitro fertilisation
     Dosage: 0.075 MILLIGRAM (SCHEDULED TO BE ADMINISTERED FOR 28 DAYS, RECEIVED DURING IN VITRO FERTILIZATION)
     Route: 065
  14. ETHINYL ESTRADIOL [Suspect]
     Active Substance: ETHINYL ESTRADIOL
     Indication: Hormone therapy
  15. ENANTONE LP [Suspect]
     Active Substance: LEUPROLIDE ACETATE
     Indication: Controlled ovarian stimulation
     Dosage: UNK
     Route: 065
  16. FOLLITROPIN BETA [Suspect]
     Active Substance: FOLLITROPIN BETA
     Indication: In vitro fertilisation
     Dosage: 300 INTERNATIONAL UNIT (SCHEDULED ADMINISTERED FOR 8 DAYS RECEIVED DURING IN VITRO FERTILIZATION)
     Route: 030
     Dates: start: 20120517, end: 20120524
  17. FOLLITROPIN BETA [Suspect]
     Active Substance: FOLLITROPIN BETA
     Indication: Hormone therapy
  18. FOLLITROPIN BETA [Suspect]
     Active Substance: FOLLITROPIN BETA
     Indication: Controlled ovarian stimulation
  19. FOLLITROPIN ALFA [Suspect]
     Active Substance: FOLLITROPIN ALFA
     Indication: Controlled ovarian stimulation
     Dosage: 300 INTERNATIONAL UNIT, ONCE A DAY (300 IU, QD (1500 CUMULTIVE DOSE TO FIRST REACTION))
     Route: 030
     Dates: start: 20120517
  20. FOLLITROPIN ALFA [Suspect]
     Active Substance: FOLLITROPIN ALFA
     Indication: Hypothalamo-pituitary disorder
  21. ETHINYL ESTRADIOL\GESTODENE [Suspect]
     Active Substance: ETHINYL ESTRADIOL\GESTODENE
     Indication: In vitro fertilisation
     Dosage: 1 DOSAGE FORM, ONCE A DAY
     Route: 065
     Dates: start: 20120415, end: 20120512
  22. ETHINYL ESTRADIOL\GESTODENE [Suspect]
     Active Substance: ETHINYL ESTRADIOL\GESTODENE
     Indication: Menstrual cycle management
  23. ETHINYL ESTRADIOL\GESTODENE [Suspect]
     Active Substance: ETHINYL ESTRADIOL\GESTODENE
     Indication: Hormone therapy
  24. GESTODENE [Suspect]
     Active Substance: GESTODENE
     Indication: In vitro fertilisation
     Dosage: 0.03 MG, UNK (SCHEDULED TO BE ADMINISTERED FOR 28 DAYS; RECEIVED DURING IN VITRO FERTILIZATION)
     Route: 065
  25. GESTODENE [Suspect]
     Active Substance: GESTODENE
     Indication: Hormone therapy
     Dosage: UNK
     Route: 065
  26. KEPPRA [Suspect]
     Active Substance: LEVETIRACETAM
     Indication: Epilepsy
     Dosage: 3000 MILLIGRAM, ONCE A DAY
     Route: 048
     Dates: start: 20110418
  27. KEPPRA [Suspect]
     Active Substance: LEVETIRACETAM
     Indication: Generalised tonic-clonic seizure
  28. KEPPRA [Suspect]
     Active Substance: LEVETIRACETAM
     Indication: Partial seizures
  29. MENOTROPINS [Suspect]
     Active Substance: MENOTROPINS
     Indication: Controlled ovarian stimulation
     Dosage: UNK
     Route: 065
  30. FOLLITROPIN BETA [Suspect]
     Active Substance: FOLLITROPIN BETA
     Indication: In vitro fertilisation
     Dosage: 300 IU, UNK ( (SCHEDULED TO BE ADMINISTERED FOR 8 DAYS; RECEIVED DURING IN VITRO FERTILIZATION FRO)
     Route: 030
     Dates: start: 20120517, end: 20120524
  31. FOLLITROPIN BETA [Suspect]
     Active Substance: FOLLITROPIN BETA
     Indication: Hypothalamo-pituitary disorder
     Dosage: UNK
     Route: 065
  32. FOLLITROPIN BETA [Suspect]
     Active Substance: FOLLITROPIN BETA
     Indication: Hormone therapy
  33. CLOBAZAM [Concomitant]
     Active Substance: CLOBAZAM
     Indication: Epilepsy
     Dosage: 10 MILLIGRAM, BID (2 IN 1 D)
     Route: 065
  34. CLOBAZAM [Concomitant]
     Active Substance: CLOBAZAM
     Dosage: 10 MILLIGRAM, ONCE A DAY
     Route: 065

REACTIONS (8)
  - Generalised tonic-clonic seizure [Recovered/Resolved]
  - Condition aggravated [Recovered/Resolved]
  - Drug level decreased [Unknown]
  - Drug interaction [Unknown]
  - Drug ineffective [Recovered/Resolved]
  - Blood oestrogen increased [Unknown]
  - Product use in unapproved indication [Unknown]
  - Off label use [Unknown]

NARRATIVE: CASE EVENT DATE: 20120415
